FAERS Safety Report 13214907 (Version 3)
Quarter: 2017Q1

REPORT INFORMATION
  Report Type: Report from Study
  Country: None (occurrence: CA)
  Receive Date: 20170210
  Receipt Date: 20170313
  Transmission Date: 20170428
  Serious: Yes (Death, Hospitalization, Other)
  Sender: FDA-Public Use
  Company Number: CA-ABBVIE-17P-028-1871076-00

PATIENT
  Sex: Male
  Weight: 59.02 kg

DRUGS (4)
  1. LUPRON DEPOT [Suspect]
     Active Substance: LEUPROLIDE ACETATE
     Indication: PROSTATE CANCER METASTATIC
     Route: 030
     Dates: start: 20131113, end: 20160317
  2. TERAZOSIN [Concomitant]
     Active Substance: TERAZOSIN\TERAZOSIN HYDROCHLORIDE
     Indication: PRODUCT USED FOR UNKNOWN INDICATION
     Route: 065
     Dates: start: 20070113, end: 20160825
  3. PROSCAR [Concomitant]
     Active Substance: FINASTERIDE
     Indication: PRODUCT USED FOR UNKNOWN INDICATION
     Route: 065
     Dates: start: 20080306, end: 20160825
  4. SIMVASTATIN. [Concomitant]
     Active Substance: SIMVASTATIN
     Indication: BLOOD CHOLESTEROL
     Route: 048
     Dates: start: 20131101, end: 20160825

REACTIONS (7)
  - Diarrhoea [Unknown]
  - Malaise [Unknown]
  - Colon cancer [Fatal]
  - Diarrhoea haemorrhagic [Unknown]
  - Asthenia [Unknown]
  - Dehydration [Unknown]
  - Rectal cancer [Unknown]

NARRATIVE: CASE EVENT DATE: 20160524
